FAERS Safety Report 10082358 (Version 3)
Quarter: 2014Q4

REPORT INFORMATION
  Report Type: Spontaneous
  Country: US (occurrence: US)
  Receive Date: 20140416
  Receipt Date: 20141216
  Transmission Date: 20150528
  Serious: Yes (Other)
  Sender: FDA-Public Use
  Company Number: US-009507513-1404USA007918

PATIENT
  Sex: Male

DRUGS (1)
  1. PROPECIA [Suspect]
     Active Substance: FINASTERIDE
     Indication: ALOPECIA
     Dosage: UNK
     Route: 048
     Dates: start: 2007, end: 2007

REACTIONS (11)
  - Anxiety [Not Recovered/Not Resolved]
  - Semen volume decreased [Unknown]
  - Suicidal ideation [Not Recovered/Not Resolved]
  - Haematuria [Unknown]
  - Erectile dysfunction [Unknown]
  - Loss of libido [Unknown]
  - Promiscuity [Unknown]
  - Sexual dysfunction [Not Recovered/Not Resolved]
  - Depression [Not Recovered/Not Resolved]
  - Cognitive disorder [Not Recovered/Not Resolved]
  - Premature ejaculation [Unknown]

NARRATIVE: CASE EVENT DATE: 2008
